FAERS Safety Report 8484299-0 (Version None)
Quarter: 2012Q3

REPORT INFORMATION
  Report Type: 
  Country: None (occurrence: None)
  Receive Date: 20120703
  Receipt Date: 20120627
  Transmission Date: 20120928
  Serious: Yes (Other)
  Sender: FDA-Public Use
  Company Number: US-JNJFOC-20110604003

PATIENT

DRUGS (4)
  1. VINBLASTINE SULFATE [Suspect]
     Indication: HODGKIN'S DISEASE
     Dosage: ON DAY 1 AND 15, CYCLE WERE REPEATED EVERY 28 DAYS FOR A TOTAL OF 6 CYCLES
     Route: 042
  2. GEMCITABINE [Suspect]
     Indication: HODGKIN'S DISEASE
     Dosage: ON DAYS 1 AND DAYS 15,CYCLES WERE REPEATED EVERY 28 DAYS FOR A TOTAL OF 6 CYCLES
     Route: 042
  3. DOXORUBICIN HCL [Suspect]
     Indication: HODGKIN'S DISEASE
     Dosage: DAYS 1 AND 15, CYCLE WERE REPEATED EVERY 28 DAYS FOR A TOTAL OF 6 CYCLES
     Route: 065
  4. DOXORUBICIN HYDROCHLORIDE [Suspect]
     Indication: HODGKIN'S DISEASE
     Dosage: DAYS 1 AND 15, CYCLE WERE REPEATED EVERY 28 DAYS FOR A TOTAL OF 6 CYCLES
     Route: 042

REACTIONS (1)
  - HYPOCALCAEMIA [None]
